FAERS Safety Report 9717516 (Version 3)
Quarter: 2015Q3

REPORT INFORMATION
  Report Type: Spontaneous
  Country: US (occurrence: US)
  Receive Date: 20131127
  Receipt Date: 20150803
  Transmission Date: 20151125
  Serious: No
  Sender: FDA-Public Use
  Company Number: US-GILEAD-2008-0019626

PATIENT
  Age: 64 Year
  Sex: Male
  Weight: 86.64 kg

DRUGS (16)
  1. LETAIRIS [Suspect]
     Active Substance: AMBRISENTAN
     Indication: PULMONARY ARTERIAL HYPERTENSION
     Route: 048
     Dates: start: 20071015
  2. DIGOXIN. [Concomitant]
     Active Substance: DIGOXIN
  3. VALIUM [Concomitant]
     Active Substance: DIAZEPAM
  4. ASA [Concomitant]
     Active Substance: ASPIRIN
  5. REVATIO [Concomitant]
     Active Substance: SILDENAFIL CITRATE
  6. COMBIVENT [Concomitant]
     Active Substance: ALBUTEROL SULFATE\IPRATROPIUM BROMIDE
  7. ADVAIR HFA [Concomitant]
     Active Substance: FLUTICASONE PROPIONATE\SALMETEROL XINAFOATE
  8. ZYLOPRIM [Concomitant]
     Active Substance: ALLOPURINOL
  9. OXYCODONE-ACETAMINOPHEN [Concomitant]
     Active Substance: ACETAMINOPHEN\OXYCODONE HYDROCHLORIDE
  10. COLCHICINE. [Concomitant]
     Active Substance: COLCHICINE
  11. VITAMIN D2 [Concomitant]
     Active Substance: ERGOCALCIFEROL
  12. XANAX [Concomitant]
     Active Substance: ALPRAZOLAM
  13. PLAVIX [Concomitant]
     Active Substance: CLOPIDOGREL BISULFATE
  14. FENTANYL. [Concomitant]
     Active Substance: FENTANYL
  15. COUMADIN [Concomitant]
     Active Substance: WARFARIN SODIUM
  16. METOPROLOL [Concomitant]
     Active Substance: METOPROLOL

REACTIONS (1)
  - Myalgia [Not Recovered/Not Resolved]

NARRATIVE: CASE EVENT DATE: 200708
